FAERS Safety Report 24141135 (Version 1)
Quarter: 2024Q3

REPORT INFORMATION
  Report Type: Spontaneous
  Country: JP (occurrence: JP)
  Receive Date: 20240726
  Receipt Date: 20240726
  Transmission Date: 20241017
  Serious: Yes (Death, Other)
  Sender: BAXTER
  Company Number: JP-shionogi-202405434_EXJ_P_1

PATIENT
  Age: 3 Decade
  Sex: Female
  Weight: 40 kg

DRUGS (8)
  1. CYCLOPHOSPHAMIDE [Suspect]
     Active Substance: CYCLOPHOSPHAMIDE
     Indication: Leukaemia
     Dosage: 1800 MG, QD
     Route: 065
  2. CYCLOPHOSPHAMIDE [Suspect]
     Active Substance: CYCLOPHOSPHAMIDE
     Dosage: 1000 MG, QD, START DATE: 09-MAR (UNSPECIFIED YEAR)
     Route: 065
  3. CYCLOPHOSPHAMIDE [Suspect]
     Active Substance: CYCLOPHOSPHAMIDE
     Dosage: 1000 MG, QD, 1 MONTH LATER
     Route: 065
  4. CYCLOPHOSPHAMIDE [Suspect]
     Active Substance: CYCLOPHOSPHAMIDE
     Dosage: 1000 MG, QD, 1 WEEK LATER
     Route: 065
  5. MESNA [Suspect]
     Active Substance: MESNA
     Indication: Prophylaxis
     Dosage: UNK, DOSAGE FORM: INJECTION
     Route: 065
  6. PREDONINE [Suspect]
     Active Substance: PREDNISOLONE
     Dosage: UNK
     Route: 065
  7. CYTARABINE [Concomitant]
     Active Substance: CYTARABINE
     Dosage: UNK
     Route: 065
  8. TEICOPLANIN [Concomitant]
     Active Substance: TEICOPLANIN
     Dosage: UNK
     Route: 065

REACTIONS (23)
  - Death [Fatal]
  - Glaucoma [Unknown]
  - Cataract [Unknown]
  - Retinal haemorrhage [Unknown]
  - Neoplasm malignant [Unknown]
  - Gastrointestinal perforation [Unknown]
  - Gastric ulcer [Unknown]
  - Autoimmune haemolytic anaemia [Unknown]
  - Leukoencephalopathy [Unknown]
  - Bronchopulmonary aspergillosis [Unknown]
  - Sepsis [Unknown]
  - Systemic mycosis [Unknown]
  - Cystitis haemorrhagic [Unknown]
  - Disseminated intravascular coagulation [Unknown]
  - Stevens-Johnson syndrome [Unknown]
  - Hepatitis [Unknown]
  - Dry eye [Unknown]
  - Weight decreased [Unknown]
  - Staphylococcal infection [Unknown]
  - Skin infection [Unknown]
  - Infection [Unknown]
  - Platelet count decreased [Unknown]
  - Decreased appetite [Unknown]
